FAERS Safety Report 24130242 (Version 2)
Quarter: 2024Q3

REPORT INFORMATION
  Report Type: Report from Study
  Country: JP (occurrence: JP)
  Receive Date: 20240724
  Receipt Date: 20240902
  Transmission Date: 20241017
  Serious: Yes (Other)
  Sender: TAKEDA
  Company Number: JP-TAKEDA-2023TJP011574

PATIENT
  Age: 25 Year
  Sex: Female
  Weight: 79.3 kg

DRUGS (1)
  1. VONICOG ALFA [Suspect]
     Active Substance: VONICOG ALFA
     Indication: Haemostasis
     Dosage: 2600 INTERNATIONAL UNIT
     Route: 041
     Dates: start: 20230710, end: 20230711

REACTIONS (5)
  - Gastric ulcer [Recovering/Resolving]
  - Pain [Recovering/Resolving]
  - Vertigo [Recovered/Resolved]
  - Hypozincaemia [Unknown]
  - Pregnancy [Unknown]

NARRATIVE: CASE EVENT DATE: 20230710
